FAERS Safety Report 20617984 (Version 1)
Quarter: 2022Q1

REPORT INFORMATION
  Report Type: Spontaneous
  Country: DK (occurrence: DK)
  Receive Date: 20220321
  Receipt Date: 20220321
  Transmission Date: 20220423
  Serious: Yes (Other)
  Sender: FDA-Public Use
  Company Number: DK-BAUSCH-BL-2022-006966

PATIENT
  Age: 80 Year
  Sex: Female

DRUGS (1)
  1. BUDESONIDE [Suspect]
     Active Substance: BUDESONIDE
     Indication: Colitis microscopic
     Route: 065
     Dates: start: 20210724, end: 202109

REACTIONS (4)
  - Visual impairment [Recovered/Resolved]
  - Glaucoma [Recovered/Resolved]
  - Cataract [Unknown]
  - Eye allergy [Recovered/Resolved]

NARRATIVE: CASE EVENT DATE: 20210101
